FAERS Safety Report 5464345-9 (Version None)
Quarter: 2007Q3

REPORT INFORMATION
  Report Type: 
  Country: None (occurrence: None)
  Receive Date: 20070921
  Receipt Date: 20070911
  Transmission Date: 20080115
  Serious: Yes (Other)
  Sender: FDA-Public Use
  Company Number: AU-ROCHE-512903

PATIENT
  Age: 32 Year
  Sex: Male
  Weight: 104 kg

DRUGS (3)
  1. PEGASYS [Suspect]
     Route: 058
     Dates: start: 20070716, end: 20070816
  2. PEGASYS [Suspect]
     Route: 058
     Dates: start: 20070830
  3. RIBAVIRIN [Concomitant]
     Route: 048
     Dates: start: 20070716

REACTIONS (1)
  - CONVULSION [None]
